FAERS Safety Report 25083135 (Version 2)
Quarter: 2025Q3

REPORT INFORMATION
  Report Type: Report from Study
  Country: US (occurrence: US)
  Receive Date: 20250317
  Receipt Date: 20250802
  Transmission Date: 20251021
  Serious: Yes (Hospitalization, Other)
  Sender: ALEXION PHARMACEUTICALS
  Company Number: US-AstraZeneca-CH-00824784A

PATIENT
  Sex: Female
  Weight: 104.3 kg

DRUGS (2)
  1. OSIMERTINIB [Suspect]
     Active Substance: OSIMERTINIB
     Indication: Lung neoplasm malignant
     Dosage: 80 MILLIGRAM, QD
     Dates: start: 20250226
  2. XARELTO [Concomitant]
     Active Substance: RIVAROXABAN
     Dosage: 15 MILLIGRAM, BID
     Route: 065

REACTIONS (6)
  - Deep vein thrombosis [Unknown]
  - Pulmonary embolism [Unknown]
  - Sternal fracture [Unknown]
  - Compression fracture [Unknown]
  - Pain [Unknown]
  - Diarrhoea [Unknown]
